FAERS Safety Report 4479598-3 (Version None)
Quarter: 2004Q4

REPORT INFORMATION
  Report Type: 
  Country: None (occurrence: None)
  Receive Date: 20041018
  Receipt Date: 20041005
  Transmission Date: 20050328
  Serious: Yes (Hospitalization)
  Sender: FDA-Public Use
  Company Number: 2004PK01668

PATIENT
  Age: 61 Year
  Sex: Female
  Weight: 47 kg

DRUGS (9)
  1. METOPROLOL SUCCINATE [Suspect]
     Indication: HYPERTENSION
     Dosage: 95 MG DAILY PO
     Route: 048
     Dates: start: 20030101
  2. INSULIN [Suspect]
     Indication: DIABETES MELLITUS NON-INSULIN-DEPENDENT
     Dosage: 6 IU TID SQ
     Route: 058
     Dates: start: 20040210, end: 20040219
  3. INSULIN PROTAPHAN HM (GE) [Suspect]
     Indication: DIABETES MELLITUS NON-INSULIN-DEPENDENT
     Dosage: 8 IU DAILY SQ
     Route: 059
     Dates: start: 20040210, end: 20040219
  4. BONDIOL [Concomitant]
  5. CA-C 500 ^SANDOZ^ [Concomitant]
  6. DIOVAN [Concomitant]
  7. LASIX [Concomitant]
  8. NEURONTIN [Concomitant]
  9. PANGROL ^VEB^ [Concomitant]

REACTIONS (6)
  - BLOOD PRESSURE INCREASED [None]
  - CONVULSION [None]
  - DRUG INTERACTION [None]
  - LOSS OF CONSCIOUSNESS [None]
  - MUSCLE TWITCHING [None]
  - SHOCK HYPOGLYCAEMIC [None]
